FAERS Safety Report 8800016 (Version 3)
Quarter: 2012Q4

REPORT INFORMATION
  Report Type: 
  Country: DE (occurrence: DE)
  Receive Date: 20120921
  Receipt Date: 20121015
  Transmission Date: 20130627
  Serious: Yes (Other)
  Sender: FDA-Public Use
  Company Number: PHHY2012DE047933

PATIENT
  Age: 75 Year
  Sex: Male

DRUGS (2)
  1. AFINITOR [Suspect]
     Indication: RENAL CELL CARCINOMA
     Dosage: 10 mg, daily
     Route: 048
     Dates: start: 20111123, end: 20120118
  2. RAMIPRIL [Concomitant]
     Indication: HYPERTENSION
     Dosage: 5 mg, per day
     Route: 048

REACTIONS (7)
  - Pneumonitis [Not Recovered/Not Resolved]
  - Cough [Not Recovered/Not Resolved]
  - Dyspnoea [Not Recovered/Not Resolved]
  - Activities of daily living impaired [Not Recovered/Not Resolved]
  - Lymphangiosis carcinomatosa [Unknown]
  - Neoplasm progression [Unknown]
  - Malignant neoplasm progression [Unknown]
